FAERS Safety Report 12336171 (Version 1)
Quarter: 2016Q2

REPORT INFORMATION
  Report Type: Spontaneous
  Country: US (occurrence: None)
  Receive Date: 20160504
  Receipt Date: 20160504
  Transmission Date: 20160815
  Serious: No
  Sender: FDA-Public Use
  Company Number: None

PATIENT
  Sex: Female

DRUGS (1)
  1. NABUMETONE. [Suspect]
     Active Substance: NABUMETONE

REACTIONS (3)
  - Product size issue [None]
  - Dysphagia [None]
  - Regurgitation [None]
